FAERS Safety Report 6328267-3 (Version None)
Quarter: 2009Q3

REPORT INFORMATION
  Report Type: 
  Country: None (occurrence: None)
  Receive Date: 20090825
  Receipt Date: 20090202
  Transmission Date: 20100115
  Serious: No
  Sender: FDA-Public Use
  Company Number: US-ABBOTT-09P-163-0501491-00

PATIENT
  Sex: Female

DRUGS (4)
  1. SYNTHROID [Suspect]
     Indication: HORMONE REPLACEMENT THERAPY
     Route: 048
     Dates: start: 20070901, end: 20070901
  2. SYNTHROID [Suspect]
     Dates: start: 20071201
  3. KADIAN [Concomitant]
     Indication: PAIN
  4. PERCOCET [Concomitant]
     Indication: PAIN

REACTIONS (1)
  - ALOPECIA [None]
